FAERS Safety Report 16270764 (Version 2)
Quarter: 2019Q2

REPORT INFORMATION
  Report Type: Spontaneous
  Country: US (occurrence: US)
  Receive Date: 20190505
  Receipt Date: 20190614
  Transmission Date: 20190711
  Serious: No
  Sender: FDA-Public Use
  Company Number: US-JNJFOC-20190418827

PATIENT
  Age: 2 Month
  Sex: Female

DRUGS (1)
  1. INFANTS TYLENOL [Suspect]
     Active Substance: ACETAMINOPHEN
     Indication: PYREXIA
     Dosage: LESS THAN 1.25ML
     Route: 048
     Dates: start: 20181231, end: 20181231

REACTIONS (6)
  - Hyperventilation [Recovered/Resolved]
  - Product odour abnormal [Unknown]
  - Dyspnoea [Recovered/Resolved]
  - Erythema [Recovered/Resolved]
  - Suspected product tampering [Unknown]
  - Vomiting [Recovered/Resolved]

NARRATIVE: CASE EVENT DATE: 20181231
